FAERS Safety Report 13285408 (Version 1)
Quarter: 2017Q1

REPORT INFORMATION
  Report Type: Spontaneous
  Country: US (occurrence: US)
  Receive Date: 20170302
  Receipt Date: 20170302
  Transmission Date: 20170428
  Serious: Yes (Other)
  Sender: FDA-Public Use
  Company Number: None

PATIENT
  Age: 55 Year
  Sex: Female
  Weight: 99 kg

DRUGS (1)
  1. OXYCODONE/APAP [Suspect]
     Active Substance: ACETAMINOPHEN\OXYCODONE HYDROCHLORIDE
     Indication: MENISCUS OPERATION
     Route: 048
     Dates: start: 20170220, end: 20170224

REACTIONS (3)
  - Nausea [None]
  - Headache [None]
  - Gastric mucosal lesion [None]

NARRATIVE: CASE EVENT DATE: 20170220
